FAERS Safety Report 8537466-1 (Version None)
Quarter: 2012Q3

REPORT INFORMATION
  Report Type: 
  Country: None (occurrence: None)
  Receive Date: 20120712
  Receipt Date: 20120626
  Transmission Date: 20120928
  Serious: Yes (Other)
  Sender: FDA-Public Use
  Company Number: METO20120155

PATIENT
  Age: 37 Year
  Sex: Female

DRUGS (1)
  1. METOCLOPRAMIDE HYDROCHLORIDE [Suspect]
     Indication: NAUSEA
     Dosage: UNK, ONCE, ORAL
     Route: 048

REACTIONS (2)
  - SENSORY LOSS [None]
  - PARAPARESIS [None]
